FAERS Safety Report 6390926-4 (Version None)
Quarter: 2009Q4

REPORT INFORMATION
  Report Type: 
  Country: None (occurrence: None)
  Receive Date: 20091003
  Receipt Date: 20090922
  Transmission Date: 20100525
  Serious: Yes (Hospitalization)
  Sender: FDA-Public Use
  Company Number: 20097228

PATIENT
  Age: 68 Year
  Sex: Male

DRUGS (1)
  1. BACLOFEN [Suspect]
     Indication: MUSCLE SPASTICITY
     Dosage: 43 MCG, DAILY, INTRATHECAL
     Route: 037

REACTIONS (2)
  - DECUBITUS ULCER [None]
  - SCROTAL SWELLING [None]
